FAERS Safety Report 19450778 (Version 1)
Quarter: 2021Q2

REPORT INFORMATION
  Report Type: Spontaneous
  Country: US (occurrence: US)
  Receive Date: 20210622
  Receipt Date: 20210622
  Transmission Date: 20210717
  Serious: No
  Sender: FDA-Public Use
  Company Number: None

PATIENT
  Age: 26 Year
  Sex: Female
  Weight: 120.2 kg

DRUGS (2)
  1. OCREVUS [Suspect]
     Active Substance: OCRELIZUMAB
     Dosage: 300 MG DAY 1 AND DAY 15 INTRAVENOUS
     Route: 042
  2. 0.9% NORMAL SALINE [Suspect]
     Active Substance: SODIUM CHLORIDE

REACTIONS (2)
  - Chest discomfort [None]
  - Throat irritation [None]

NARRATIVE: CASE EVENT DATE: 20210618
